FAERS Safety Report 8453446-9 (Version None)
Quarter: 2012Q2

REPORT INFORMATION
  Report Type: 
  Country: None (occurrence: None)
  Receive Date: 20120620
  Receipt Date: 20120517
  Transmission Date: 20120825
  Serious: No
  Sender: FDA-Public Use
  Company Number: US-VERTEX PHARMACEUTICALS INC.-AE-2012-007381

PATIENT
  Sex: Male
  Weight: 76 kg

DRUGS (6)
  1. RIBAVIRIN [Concomitant]
     Indication: HEPATITIS C
  2. INCIVEK [Suspect]
     Indication: HEPATITIS C
     Route: 048
     Dates: start: 20120301
  3. PEGINTERFERON ALFA-2A [Concomitant]
     Indication: HEPATITIS C
     Route: 058
  4. MICARDIS [Concomitant]
  5. VESICARE [Concomitant]
  6. DILANTIN [Concomitant]

REACTIONS (7)
  - EPISTAXIS [None]
  - DRY MOUTH [None]
  - ANAEMIA [None]
  - RASH [None]
  - DRY SKIN [None]
  - ANORECTAL DISCOMFORT [None]
  - PRURITUS [None]
